FAERS Safety Report 13210864 (Version 1)
Quarter: 2017Q1

REPORT INFORMATION
  Report Type: Spontaneous
  Country: US (occurrence: US)
  Receive Date: 20170209
  Receipt Date: 20170209
  Transmission Date: 20170428
  Serious: Yes (Death, Life-Threatening, Hospitalization, Other)
  Sender: FDA-Public Use
  Company Number: None

PATIENT
  Age: 66 Year
  Sex: Male
  Weight: 76.5 kg

DRUGS (3)
  1. NORTHERA [Suspect]
     Active Substance: DROXIDOPA
     Indication: ORTHOSTATIC HYPOTENSION
     Dosage: ?          QUANTITY:500 MG;?
     Route: 048
     Dates: start: 20160825, end: 20160908
  2. METOPROLOL. [Concomitant]
     Active Substance: METOPROLOL
  3. AZILECT [Concomitant]
     Active Substance: RASAGILINE MESYLATE

REACTIONS (2)
  - Coma [None]
  - Haemorrhage intracranial [None]

NARRATIVE: CASE EVENT DATE: 20160908
